FAERS Safety Report 8454703-2 (Version None)
Quarter: 2012Q2

REPORT INFORMATION
  Report Type: 
  Country: None (occurrence: None)
  Receive Date: 20120615
  Receipt Date: 20120615
  Transmission Date: 20120825
  Serious: Yes (Other)
  Sender: FDA-Public Use
  Company Number: None

PATIENT
  Age: 68 Year
  Sex: Male

DRUGS (1)
  1. SIMPONI [Suspect]
     Indication: RHEUMATOID ARTHRITIS
     Dosage: 50MG MONTHLY SQ
     Route: 058
     Dates: start: 20120121, end: 20120606

REACTIONS (2)
  - LOSS OF CONSCIOUSNESS [None]
  - DIZZINESS [None]
